FAERS Safety Report 7794544-2 (Version None)
Quarter: 2011Q4

REPORT INFORMATION
  Report Type: 
  Country: None (occurrence: None)
  Receive Date: 20111004
  Receipt Date: 20110922
  Transmission Date: 20120403
  Serious: Yes (Hospitalization)
  Sender: FDA-Public Use
  Company Number: US-BAYER-2011-009458

PATIENT
  Age: 39 Year
  Sex: Female

DRUGS (2)
  1. YAZ [Suspect]
     Indication: CONTRACEPTION
     Dosage: UNK
     Dates: start: 20081101, end: 20090211
  2. TORADOL [Concomitant]
     Indication: HEADACHE
     Route: 042

REACTIONS (8)
  - INTRACRANIAL VENOUS SINUS THROMBOSIS [None]
  - FEAR [None]
  - SINUS HEADACHE [None]
  - INJURY [None]
  - ANXIETY [None]
  - PAIN [None]
  - MENTAL DISORDER [None]
  - EMOTIONAL DISTRESS [None]
